FAERS Safety Report 13671791 (Version 1)
Quarter: 2017Q2

REPORT INFORMATION
  Report Type: Spontaneous
  Country: US (occurrence: US)
  Receive Date: 20170620
  Receipt Date: 20170620
  Transmission Date: 20170830
  Serious: No
  Sender: FDA-Public Use
  Company Number: US-BAYER-2017-117462

PATIENT
  Sex: Male

DRUGS (2)
  1. XOFIGO [Suspect]
     Active Substance: RADIUM RA-223 DICHLORIDE
  2. DOCETAXEL. [Suspect]
     Active Substance: DOCETAXEL

REACTIONS (4)
  - Skin irritation [None]
  - Rash [None]
  - Skin discolouration [None]
  - Skin hyperpigmentation [None]
